FAERS Safety Report 23516158 (Version 1)
Quarter: 2024Q1

REPORT INFORMATION
  Report Type: 
  Country: None (occurrence: None)
  Receive Date: 20240213
  Receipt Date: 20240213
  Transmission Date: 20240410
  Serious: No
  Sender: FDA-Public Use
  Company Number: RO-ROCHE-3508604

PATIENT
  Age: 59 Year
  Weight: 76 kg

DRUGS (3)
  1. HERCEPTIN [Suspect]
     Active Substance: TRASTUZUMAB
     Dosage: Q3W - EVERY 3 WEEKS
     Dates: start: 20190827, end: 202008
  2. TAXOTERE [Suspect]
     Active Substance: DOCETAXEL
     Dosage: Q3W - EVERY 3 WEEKS
     Dates: start: 20190513, end: 202008
  3. ELLENCE [Suspect]
     Active Substance: EPIRUBICIN HYDROCHLORIDE
     Dosage: Q3W - EVERY 3 WEEKS
     Dates: start: 20190513, end: 20190805

REACTIONS (1)
  - Death [None]

NARRATIVE: CASE EVENT DATE: 20200815
